FAERS Safety Report 21414501 (Version 1)
Quarter: 2022Q4

REPORT INFORMATION
  Report Type: Other
  Country: CA (occurrence: CA)
  Receive Date: 20221006
  Receipt Date: 20221006
  Transmission Date: 20230113
  Serious: Yes (Death, Other)
  Sender: FDA-Public Use
  Company Number: CA-APOTEX-2022AP013887

PATIENT
  Age: 67 Year
  Sex: Male

DRUGS (5)
  1. IMATINIB [Suspect]
     Active Substance: IMATINIB
     Indication: Chronic myeloid leukaemia
     Dosage: 400 MILLIGRAM, QD
     Route: 048
  2. ESCITALOPRAM [Concomitant]
     Active Substance: ESCITALOPRAM OXALATE
     Indication: Product used for unknown indication
     Dosage: UNK
     Route: 065
  3. INSULIN NOS [Concomitant]
     Active Substance: INSULIN NOS
     Indication: Diabetes mellitus
     Dosage: UNK
     Route: 065
  4. LEVEMIR [Concomitant]
     Active Substance: INSULIN DETEMIR
     Indication: Diabetes mellitus
     Dosage: UNK
     Route: 065
  5. LEVODOPA [Concomitant]
     Active Substance: LEVODOPA
     Indication: Parkinson^s disease
     Dosage: 5 DOSAGE FORM
     Route: 065

REACTIONS (21)
  - Death [Fatal]
  - Blood glucose decreased [Unknown]
  - Blood glucose fluctuation [Unknown]
  - Eye disorder [Unknown]
  - Feeling abnormal [Unknown]
  - Skin disorder [Unknown]
  - Sleep apnoea syndrome [Unknown]
  - Snoring [Unknown]
  - Sunburn [Unknown]
  - Swelling face [Unknown]
  - Muscular weakness [Unknown]
  - Memory impairment [Unknown]
  - Muscle spasms [Unknown]
  - Fluid retention [Unknown]
  - Headache [Unknown]
  - Dizziness [Unknown]
  - Fatigue [Unknown]
  - Alopecia [Unknown]
  - Weight increased [Unknown]
  - Somnolence [Unknown]
  - Drug ineffective [Unknown]
